FAERS Safety Report 9127538 (Version 2)
Quarter: 2013Q2

REPORT INFORMATION
  Report Type: Report from Study
  Country: US (occurrence: US)
  Receive Date: 20130125
  Receipt Date: 20130522
  Transmission Date: 20140414
  Serious: Yes (Other)
  Sender: FDA-Public Use
  Company Number: US-MYLANLABS-2012S1025800

PATIENT
  Age: 60 Year
  Sex: Male

DRUGS (8)
  1. CLOZAPINE TABLETS [Suspect]
     Indication: BIPOLAR DISORDER
     Dosage: 200MG QAM, 400MG HS
     Dates: end: 20121211
  2. CLOZAPINE TABLETS [Suspect]
     Indication: BIPOLAR DISORDER
  3. LEVAQUIN [Suspect]
  4. GEODON [Concomitant]
  5. RISPERDAL [Concomitant]
  6. DEPAKOTE [Concomitant]
  7. BENZTROPINE [Concomitant]
  8. PEPCID [Concomitant]

REACTIONS (3)
  - Granulocytopenia [Not Recovered/Not Resolved]
  - Leukopenia [Recovered/Resolved]
  - Antipsychotic drug level increased [Recovered/Resolved]
